FAERS Safety Report 8005571-4 (Version None)
Quarter: 2011Q4

REPORT INFORMATION
  Report Type: 
  Country: None (occurrence: None)
  Receive Date: 20111223
  Receipt Date: 20111219
  Transmission Date: 20120403
  Serious: Yes (Hospitalization, Other)
  Sender: FDA-Public Use
  Company Number: GB-PFIZER INC-2011308637

PATIENT
  Age: 32 Year
  Sex: Male
  Weight: 61 kg

DRUGS (16)
  1. VANCOMYCIN [Suspect]
     Dosage: 1000 MG, 2X/DAY
     Route: 042
     Dates: start: 20111101, end: 20111107
  2. FUROSEMIDE [Concomitant]
  3. METOCLOPRAMIDE [Concomitant]
  4. PABRINEX [Concomitant]
  5. MAGNESIUM SULFATE [Concomitant]
  6. LEVETIRACETAM [Suspect]
     Indication: CONVULSION
     Dosage: 250 MG, 2X/DAY
     Dates: start: 20111103, end: 20111103
  7. VALPROIC ACID ^ROLAND-MARIE^ [Suspect]
     Dosage: 300 MG, 2X/DAY
     Route: 042
     Dates: start: 20111031, end: 20111103
  8. MAGNESIUM [Concomitant]
  9. OMEPRAZOLE [Concomitant]
  10. PROPOFOL [Concomitant]
  11. CHLORHEXIDINE [Concomitant]
  12. BETAINE/POLYHEXANIDE [Concomitant]
  13. ALFENTANIL [Concomitant]
  14. DOCUSATE [Concomitant]
  15. MIDAZOLAM [Concomitant]
  16. SENNA [Concomitant]

REACTIONS (3)
  - TUBULOINTERSTITIAL NEPHRITIS [None]
  - HEPATITIS [None]
  - DRUG RASH WITH EOSINOPHILIA AND SYSTEMIC SYMPTOMS [None]
